FAERS Safety Report 9373588 (Version 2)
Quarter: 2013Q4

REPORT INFORMATION
  Report Type: Spontaneous
  Country: GB (occurrence: GB)
  Receive Date: 20130627
  Receipt Date: 20131028
  Transmission Date: 20140711
  Serious: Yes (Other)
  Sender: FDA-Public Use
  Company Number: PHHY2013GB063921

PATIENT
  Age: 72 Year
  Sex: Female
  Weight: 110 kg

DRUGS (7)
  1. GLICLAZIDE [Suspect]
     Indication: DIABETES MELLITUS
     Dosage: 80 MG, QD
     Route: 048
     Dates: start: 20130129, end: 20130528
  2. WARFARIN [Interacting]
  3. RAMIPRIL [Concomitant]
  4. SIMVASTATIN [Concomitant]
  5. METFORMIN [Concomitant]
  6. BENDROFLUMETHIAZIDE [Concomitant]
  7. ATENOLOL [Concomitant]

REACTIONS (2)
  - International normalised ratio decreased [Recovered/Resolved]
  - Drug interaction [Unknown]
